FAERS Safety Report 24914394 (Version 1)
Quarter: 2025Q1

REPORT INFORMATION
  Report Type: Spontaneous
  Country: US (occurrence: US)
  Receive Date: 20250203
  Receipt Date: 20250203
  Transmission Date: 20250409
  Serious: No
  Sender: AUROBINDO
  Company Number: US-AUROBINDO-AUR-APL-2024-039697

PATIENT
  Age: 87 Year
  Sex: Female
  Weight: 44.452 kg

DRUGS (3)
  1. FAMOTIDINE [Suspect]
     Active Substance: FAMOTIDINE
     Indication: Product used for unknown indication
     Dosage: 10 MILLIGRAM, ONCE A DAY
     Route: 065
  2. FAMOTIDINE [Suspect]
     Active Substance: FAMOTIDINE
     Dosage: 20 MILLIGRAM, ONCE A DAY
     Route: 065
  3. AMOXICILLIN [Suspect]
     Active Substance: AMOXICILLIN
     Indication: Product used for unknown indication
     Route: 065

REACTIONS (9)
  - Vomiting [Not Recovered/Not Resolved]
  - Hypophagia [Unknown]
  - Flatulence [Unknown]
  - Drug ineffective [Unknown]
  - Product use complaint [Unknown]
  - Product use issue [Unknown]
  - Product physical consistency issue [Unknown]
  - Product size issue [Unknown]
  - Product colour issue [Unknown]
